FAERS Safety Report 8490960-4 (Version None)
Quarter: 2012Q3

REPORT INFORMATION
  Report Type: 
  Country: None (occurrence: None)
  Receive Date: 20120706
  Receipt Date: 20120702
  Transmission Date: 20120928
  Serious: Yes (Other)
  Sender: FDA-Public Use
  Company Number: US-TEVA-346131USA

PATIENT
  Age: 70 Year
  Sex: Male

DRUGS (3)
  1. VICTOZA [Suspect]
  2. METFORMIN HCL [Suspect]
  3. NICOTINIC ACID [Suspect]

REACTIONS (6)
  - PLATELET COUNT DECREASED [None]
  - JOINT SWELLING [None]
  - MUSCLE SPASMS [None]
  - HEPATIC CIRRHOSIS [None]
  - PERITONITIS BACTERIAL [None]
  - HEPATIC STEATOSIS [None]
